FAERS Safety Report 8509441-4 (Version None)
Quarter: 2012Q3

REPORT INFORMATION
  Report Type: 
  Country: None (occurrence: None)
  Receive Date: 20120713
  Receipt Date: 20100401
  Transmission Date: 20120928
  Serious: Yes (Death, Hospitalization)
  Sender: FDA-Public Use
  Company Number: ZA-ROCHE-1087676

PATIENT
  Age: 46 Year
  Sex: Female

DRUGS (3)
  1. NEORAL [Concomitant]
  2. CERTICAN [Concomitant]
  3. CELLCEPT [Suspect]
     Indication: LUNG TRANSPLANT

REACTIONS (2)
  - SINUS DISORDER [None]
  - DEATH [None]
